FAERS Safety Report 25081706 (Version 1)
Quarter: 2025Q1

REPORT INFORMATION
  Report Type: Spontaneous
  Country: EG (occurrence: EG)
  Receive Date: 20250316
  Receipt Date: 20250316
  Transmission Date: 20250408
  Serious: Yes (Hospitalization)
  Sender: SANDOZ
  Company Number: EG-SANDOZ-SDZ2025EG015909

PATIENT
  Age: 34 Year
  Sex: Male
  Weight: 88 kg

DRUGS (1)
  1. CEFTRIAXONE [Suspect]
     Active Substance: CEFTRIAXONE
     Indication: Ear infection
     Route: 065
     Dates: start: 20241111

REACTIONS (4)
  - Lip swelling [Recovered/Resolved]
  - Rash [Recovered/Resolved]
  - Swollen tongue [Recovered/Resolved]
  - Dyspnoea [Recovered/Resolved]

NARRATIVE: CASE EVENT DATE: 20250101
